FAERS Safety Report 11267019 (Version 5)
Quarter: 2019Q1

REPORT INFORMATION
  Report Type: Spontaneous
  Country: US (occurrence: US)
  Receive Date: 20150713
  Receipt Date: 20190320
  Transmission Date: 20190417
  Serious: Yes (Other)
  Sender: FDA-Public Use
  Company Number: US-DSJP-DSU-2015-104465

PATIENT

DRUGS (9)
  1. CALCIUM [Concomitant]
     Active Substance: CALCIUM
     Indication: PRODUCT USED FOR UNKNOWN INDICATION
     Dosage: UNK
  2. BENICAR HCT [Suspect]
     Active Substance: HYDROCHLOROTHIAZIDE\OLMESARTAN MEDOXOMIL
     Indication: HYPERTENSION
     Dosage: 20MG/12.5 MG, QD
     Route: 048
     Dates: start: 20100116, end: 201305
  3. BENICAR HCT [Suspect]
     Active Substance: HYDROCHLOROTHIAZIDE\OLMESARTAN MEDOXOMIL
     Dosage: 40MG/25MG, QD
     Route: 048
     Dates: start: 201305, end: 201411
  4. BENICAR [Suspect]
     Active Substance: OLMESARTAN MEDOXOMIL
     Indication: HYPERTENSION
     Dosage: UNK, QD
     Dates: end: 201411
  5. LISINOPRIL HCTZ [Concomitant]
     Active Substance: HYDROCHLOROTHIAZIDE\LISINOPRIL
     Indication: PRODUCT USED FOR UNKNOWN INDICATION
     Dosage: UNK
     Dates: start: 20090103, end: 20100112
  6. BENICAR HCT [Suspect]
     Active Substance: HYDROCHLOROTHIAZIDE\OLMESARTAN MEDOXOMIL
     Dosage: 40MG/25MG, BID
     Dates: start: 2012
  7. VITAMIN D                          /00107901/ [Concomitant]
     Active Substance: ERGOCALCIFEROL
     Indication: PRODUCT USED FOR UNKNOWN INDICATION
     Dosage: UNK
  8. CELEXA [Suspect]
     Active Substance: CITALOPRAM HYDROBROMIDE
     Indication: ANXIETY
     Dosage: UNK
  9. CELEXA [Suspect]
     Active Substance: CITALOPRAM HYDROBROMIDE
     Dosage: 40 MG, QD
     Dates: start: 20110829

REACTIONS (6)
  - Peptic ulcer [Not Recovered/Not Resolved]
  - Sprue-like enteropathy [Not Recovered/Not Resolved]
  - Irritable bowel syndrome [Recovering/Resolving]
  - Haemorrhoids [Not Recovered/Not Resolved]
  - Anxiety [Not Recovered/Not Resolved]
  - Dizziness [Recovered/Resolved]

NARRATIVE: CASE EVENT DATE: 200707
